FAERS Safety Report 11045314 (Version 2)
Quarter: 2015Q2

REPORT INFORMATION
  Report Type: Spontaneous
  Country: BR (occurrence: BR)
  Receive Date: 20150417
  Receipt Date: 20150519
  Transmission Date: 20150821
  Serious: Yes (Other)
  Sender: FDA-Public Use
  Company Number: BR-NAPPMUNDI-GBR-2015-0027119

PATIENT
  Age: 27 Year
  Sex: Male

DRUGS (3)
  1. PARACETAMOL W/CAFFEINE/CARISOPRODOL/DICLOFENA [Concomitant]
     Indication: MUSCLE RELAXANT THERAPY
     Dosage: SEVERAL TIMES DAILY
     Route: 048
  2. NIMESULIDE [Concomitant]
     Active Substance: NIMESULIDE
     Indication: ANTIINFLAMMATORY THERAPY
     Dosage: 2-3 TABLETS DAILY
     Route: 048
  3. OXYCONTIN [Suspect]
     Active Substance: OXYCODONE HYDROCHLORIDE
     Indication: ANALGESIC THERAPY
     Dosage: 40 MG INCREASING TO X10 TABLETS DAILY
     Route: 048
     Dates: start: 201503

REACTIONS (9)
  - Vision blurred [Not Recovered/Not Resolved]
  - Heart rate increased [Not Recovered/Not Resolved]
  - Drug dependence [Unknown]
  - Drug withdrawal syndrome [Unknown]
  - Drug ineffective [Unknown]
  - Diarrhoea [Not Recovered/Not Resolved]
  - Intentional product use issue [Unknown]
  - Incorrect dosage administered [Unknown]
  - Substance-induced mood disorder [Not Recovered/Not Resolved]

NARRATIVE: CASE EVENT DATE: 201503
